FAERS Safety Report 4689872-3 (Version None)
Quarter: 2005Q2

REPORT INFORMATION
  Report Type: 
  Country: None (occurrence: None)
  Receive Date: 20050614
  Receipt Date: 20050602
  Transmission Date: 20051028
  Serious: Yes (Other)
  Sender: FDA-Public Use
  Company Number: 200514712US

PATIENT
  Sex: 0

DRUGS (1)
  1. ARAVA [Suspect]
     Indication: SYSTEMIC LUPUS ERYTHEMATOSUS
     Dosage: DOSE: NOT PROVIDED
     Dates: start: 20040101

REACTIONS (1)
  - CARDIOMYOPATHY [None]
